FAERS Safety Report 8126625-8 (Version None)
Quarter: 2012Q1

REPORT INFORMATION
  Report Type: 
  Country: None (occurrence: None)
  Receive Date: 20120210
  Receipt Date: 20120131
  Transmission Date: 20120608
  Serious: No
  Sender: FDA-Public Use
  Company Number: US-BIOGENIDEC-2011BI039407

PATIENT
  Sex: Female

DRUGS (2)
  1. AVONEX [Concomitant]
     Indication: MULTIPLE SCLEROSIS
     Route: 030
  2. TYSABRI [Suspect]
     Indication: MULTIPLE SCLEROSIS
     Route: 042
     Dates: start: 20101119, end: 20110902

REACTIONS (12)
  - WHITE BLOOD CELL COUNT INCREASED [None]
  - CHEST PAIN [None]
  - NEOPLASM MALIGNANT [None]
  - VIRAL INFECTION [None]
  - BLOOD TEST ABNORMAL [None]
  - STRESS [None]
  - GASTROENTERITIS VIRAL [None]
  - HYPERCHLORHYDRIA [None]
  - PHOBIA [None]
  - FEAR [None]
  - VOMITING [None]
  - FATIGUE [None]
